FAERS Safety Report 4809401-0 (Version None)
Quarter: 2005Q4

REPORT INFORMATION
  Report Type: 
  Country: None (occurrence: None)
  Receive Date: 20051021
  Receipt Date: 20051011
  Transmission Date: 20060501
  Serious: Yes (Other)
  Sender: FDA-Public Use
  Company Number: 200510346BCA

PATIENT
  Sex: Female

DRUGS (1)
  1. PLASBUMIN-25 [Suspect]
     Dosage: I U, INTRAVENOUS
     Route: 042
     Dates: start: 19860305

REACTIONS (1)
  - HEPATITIS C VIRUS [None]
